FAERS Safety Report 17529000 (Version 2)
Quarter: 2020Q2

REPORT INFORMATION
  Report Type: Report from Study
  Country: AT (occurrence: AT)
  Receive Date: 20200312
  Receipt Date: 20200629
  Transmission Date: 20200713
  Serious: Yes (Death, Other)
  Sender: FDA-Public Use
  Company Number: AT-ROCHE-2565007

PATIENT
  Age: 67 Year
  Sex: Female

DRUGS (1)
  1. RITUXIMAB. [Suspect]
     Active Substance: RITUXIMAB
     Indication: PRODUCT USED FOR UNKNOWN INDICATION
     Dosage: UNK
     Route: 065

REACTIONS (2)
  - Cardiopulmonary failure [Fatal]
  - Sepsis [Unknown]
